FAERS Safety Report 20326296 (Version 3)
Quarter: 2022Q2

REPORT INFORMATION
  Report Type: Spontaneous
  Country: JP (occurrence: JP)
  Receive Date: 20220112
  Receipt Date: 20220530
  Transmission Date: 20220720
  Serious: Yes (Life-Threatening, Hospitalization, Other)
  Sender: FDA-Public Use
  Company Number: JP-GLAXOSMITHKLINE-JP2022JPN004161

PATIENT

DRUGS (4)
  1. TRELEGY ELLIPTA [Suspect]
     Active Substance: FLUTICASONE FUROATE\UMECLIDINIUM BROMIDE\VILANTEROL TRIFENATATE
     Indication: Asthma
     Dosage: 100 ?G, QD
     Route: 055
     Dates: start: 20201006
  2. TRELEGY ELLIPTA [Suspect]
     Active Substance: FLUTICASONE FUROATE\UMECLIDINIUM BROMIDE\VILANTEROL TRIFENATATE
     Dosage: 100 ?G, BID
     Route: 055
     Dates: end: 20210106
  3. MONTELUKAST [Suspect]
     Active Substance: MONTELUKAST SODIUM
     Indication: Asthma
     Dosage: 10 MG
     Route: 048
     Dates: start: 20200406, end: 20210106
  4. EPINASTINE [Suspect]
     Active Substance: EPINASTINE
     Indication: Asthma
     Dosage: 20 MG
     Dates: start: 20200406, end: 20210106

REACTIONS (6)
  - Cardio-respiratory arrest [Recovered/Resolved with Sequelae]
  - Cardiac failure [Unknown]
  - Seizure [Recovered/Resolved]
  - Dyspnoea [Unknown]
  - Cerebral ischaemia [Unknown]
  - Intentional overdose [Unknown]

NARRATIVE: CASE EVENT DATE: 20211228
